FAERS Safety Report 4313642-9 (Version None)
Quarter: 2004Q1

REPORT INFORMATION
  Report Type: 
  Country: None (occurrence: None)
  Receive Date: 20040308
  Receipt Date: 20040223
  Transmission Date: 20041129
  Serious: Yes (Other)
  Sender: FDA-Public Use
  Company Number: PHEH2004US02255

PATIENT
  Age: 17 Year
  Sex: Female

DRUGS (1)
  1. TRILEPTAL [Suspect]
     Indication: CONVULSION
     Dosage: 450 MG, BID
     Route: 048

REACTIONS (3)
  - ANAPHYLACTIC REACTION [None]
  - CRYING [None]
  - HEADACHE [None]
